FAERS Safety Report 26117879 (Version 1)
Quarter: 2025Q4

REPORT INFORMATION
  Report Type: Spontaneous
  Country: US (occurrence: US)
  Receive Date: 20251203
  Receipt Date: 20251203
  Transmission Date: 20260117
  Serious: Yes (Other)
  Sender: ALCON
  Company Number: US-ALCON LABORATORIES-ALC2025US007027

PATIENT
  Age: 74 Year
  Sex: Male

DRUGS (7)
  1. BSS [Suspect]
     Active Substance: CALCIUM CHLORIDE\MAGNESIUM CHLORIDE\POTASSIUM CHLORIDE\SODIUM ACETATE\SODIUM CHLORIDE\SODIUM CITRATE
     Indication: Therapeutic procedure
     Dosage: UNK
     Route: 065
     Dates: start: 20251110
  2. BETADINE [Suspect]
     Active Substance: POVIDONE-IODINE
     Indication: Sterilisation
     Dosage: UNK
     Route: 047
     Dates: start: 20251110
  3. CYCLOGYL [Suspect]
     Active Substance: CYCLOPENTOLATE HYDROCHLORIDE
     Indication: Preoperative care
     Dosage: THREE TIME EVERY 5 MINS (X3Q5MIN)
     Route: 047
     Dates: start: 20251110
  4. LIDOCAINE [Suspect]
     Active Substance: LIDOCAINE
     Indication: Therapeutic procedure
     Dosage: UNK
     Route: 065
     Dates: start: 20251110
  5. PHENYLEPHRINE HYDROCHLORIDE [Suspect]
     Active Substance: PHENYLEPHRINE HYDROCHLORIDE
     Indication: Preoperative care
     Dosage: THREE TIME EVERY 5 MINS (X3Q5MIN)
     Route: 047
     Dates: start: 20251110
  6. TETRACAINE HCL [Suspect]
     Active Substance: TETRACAINE HYDROCHLORIDE
     Indication: Preoperative care
     Dosage: UNK
     Route: 047
     Dates: start: 20251110
  7. VIGAMOX [Suspect]
     Active Substance: MOXIFLOXACIN HYDROCHLORIDE
     Indication: Preoperative care
     Dosage: THREE TIME EVERY 5 MINS (X3Q5MIN)
     Route: 065
     Dates: start: 20251110

REACTIONS (1)
  - Endophthalmitis [Unknown]

NARRATIVE: CASE EVENT DATE: 20251110
